FAERS Safety Report 5658985-1 (Version None)
Quarter: 2008Q1

REPORT INFORMATION
  Report Type: 
  Country: None (occurrence: None)
  Receive Date: 20080310
  Receipt Date: 20070718
  Transmission Date: 20080703
  Serious: Yes (Other)
  Sender: FDA-Public Use
  Company Number: US-BAYER-200711559BCC

PATIENT
  Age: 68 Year
  Sex: Male
  Weight: 75 kg

DRUGS (1)
  1. ALEVE [Suspect]
     Indication: PROCEDURAL PAIN
     Route: 048
     Dates: start: 20070501, end: 20070515

REACTIONS (1)
  - BLOOD URINE PRESENT [None]
